FAERS Safety Report 7425298-7 (Version None)
Quarter: 2011Q2

REPORT INFORMATION
  Report Type: 
  Country: None (occurrence: None)
  Receive Date: 20110420
  Receipt Date: 20100624
  Transmission Date: 20111010
  Serious: Yes (Hospitalization, Other)
  Sender: FDA-Public Use
  Company Number: US-BAYER-201013582NA

PATIENT
  Age: 18 Year
  Sex: Female
  Weight: 79.365 kg

DRUGS (5)
  1. YASMIN [Suspect]
     Indication: ORAL CONTRACEPTION
     Dosage: AS USED DOSE: UNK
     Route: 048
     Dates: start: 20070101, end: 20080215
  2. YASMIN [Suspect]
     Indication: MENSTRUAL DISORDER
  3. VIRAL VACCINES [Concomitant]
  4. ANTIBIOTICS [Concomitant]
     Dosage: UNK
     Dates: start: 20000101
  5. MINOCYCLINE [Concomitant]
     Indication: ACNE

REACTIONS (5)
  - DYSPNOEA [None]
  - PULMONARY EMBOLISM [None]
  - PULMONARY THROMBOSIS [None]
  - DEEP VEIN THROMBOSIS [None]
  - CHEST PAIN [None]
